FAERS Safety Report 20698895 (Version 1)
Quarter: 2022Q2

REPORT INFORMATION
  Report Type: Spontaneous
  Country: CA (occurrence: CA)
  Receive Date: 20220412
  Receipt Date: 20220412
  Transmission Date: 20220720
  Serious: Yes (Death)
  Sender: FDA-Public Use
  Company Number: CA-009507513-2204CAN002498

PATIENT
  Age: 82 Year
  Sex: Male
  Weight: 66 kg

DRUGS (17)
  1. KEYTRUDA [Suspect]
     Active Substance: PEMBROLIZUMAB
     Indication: Non-small cell lung cancer stage IV
     Dosage: 265 MILLIGRAM, 1 EVERY 42 DAYS (EVERY 6 WEEKS)
     Route: 041
  2. ACETAMINOPHEN [Concomitant]
     Active Substance: ACETAMINOPHEN
  3. ATORVASTATIN [Concomitant]
     Active Substance: ATORVASTATIN
     Route: 065
  4. CALCIUM [Concomitant]
     Active Substance: CALCIUM
  5. CLOPIDOGREL [Concomitant]
     Active Substance: CLOPIDOGREL BISULFATE
  6. DOMPERIDONE [Concomitant]
     Active Substance: DOMPERIDONE
  7. FENTANYL [Concomitant]
     Active Substance: FENTANYL
  8. LEVOTHYROXINE [Concomitant]
     Active Substance: LEVOTHYROXINE
     Route: 065
  9. MIRTAZAPINE [Concomitant]
     Active Substance: MIRTAZAPINE
  10. PANTOPRAZOLE [Concomitant]
     Active Substance: PANTOPRAZOLE
  11. PREGABALIN [Concomitant]
     Active Substance: PREGABALIN
  12. ALBUTEROL [Concomitant]
     Active Substance: ALBUTEROL
  13. TAMSULOSIN [Concomitant]
     Active Substance: TAMSULOSIN
  14. VALACYCLOVIR [Concomitant]
     Active Substance: VALACYCLOVIR HYDROCHLORIDE
  15. VITAMIN B12 [Concomitant]
     Active Substance: CYANOCOBALAMIN
  16. CHOLECALCIFEROL [Concomitant]
     Active Substance: CHOLECALCIFEROL
  17. CHLOPHEDIANOL HYDROCHLORIDE [Concomitant]
     Active Substance: CHLOPHEDIANOL HYDROCHLORIDE

REACTIONS (1)
  - Myocarditis [Fatal]
